FAERS Safety Report 7350243-2 (Version None)
Quarter: 2011Q1

REPORT INFORMATION
  Report Type: 
  Country: None (occurrence: None)
  Receive Date: 20110309
  Receipt Date: 20110309
  Transmission Date: 20110831
  Serious: Yes (Hospitalization)
  Sender: FDA-Public Use
  Company Number: None

PATIENT
  Sex: Male

DRUGS (2)
  1. EVEROLIMUS 5MG NOVARTIS [Suspect]
     Indication: NON-HODGKIN'S LYMPHOMA
     Dosage: 5MG DAILY PO
     Route: 048
     Dates: start: 20101102, end: 20110307
  2. BORTEZOMIB [Suspect]
     Indication: NON-HODGKIN'S LYMPHOMA
     Dosage: 1.4MG DAYS 1,4,8,11  IV
     Route: 042
     Dates: start: 20101102, end: 20110228

REACTIONS (4)
  - CHEST DISCOMFORT [None]
  - RENAL FAILURE [None]
  - DYSPNOEA EXERTIONAL [None]
  - HAEMOGLOBIN DECREASED [None]
